FAERS Safety Report 23350324 (Version 1)
Quarter: 2023Q4

REPORT INFORMATION
  Report Type: Report from Study
  Country: US (occurrence: US)
  Receive Date: 20231229
  Receipt Date: 20231229
  Transmission Date: 20240109
  Serious: Yes (Death, Hospitalization)
  Sender: FDA-Public Use
  Company Number: US-BAYER-2023A099402

PATIENT
  Age: 72 Year
  Sex: Female

DRUGS (5)
  1. ADEMPAS [Suspect]
     Active Substance: RIOCIGUAT
     Indication: Pulmonary arterial hypertension
     Dosage: UNK
     Dates: start: 20230228
  2. BUMEX [Concomitant]
     Active Substance: BUMETANIDE
  3. METOPROLOL [Concomitant]
     Active Substance: METOPROLOL
  4. SUCCINIC ACID [Concomitant]
     Active Substance: SUCCINIC ACID
  5. SULFAMETHOXAZOLE\TRIMETHOPRIM [Concomitant]
     Active Substance: SULFAMETHOXAZOLE\TRIMETHOPRIM

REACTIONS (4)
  - Sarcoidosis [Fatal]
  - Haemoglobin decreased [Fatal]
  - Dyspnoea [Fatal]
  - Hypotension [Fatal]

NARRATIVE: CASE EVENT DATE: 20230715
